FAERS Safety Report 13086060 (Version 1)
Quarter: 2017Q1

REPORT INFORMATION
  Report Type: Spontaneous
  Country: BE (occurrence: BE)
  Receive Date: 20170104
  Receipt Date: 20170104
  Transmission Date: 20170428
  Serious: Yes (Other)
  Sender: FDA-Public Use
  Company Number: BE-CELGENEUS-BEL-2016126247

PATIENT

DRUGS (1)
  1. REVLIMID [Suspect]
     Active Substance: LENALIDOMIDE
     Indication: PLASMA CELL MYELOMA
     Route: 048

REACTIONS (9)
  - Pleurisy [Unknown]
  - Septic shock [Unknown]
  - Pericardial effusion [Unknown]
  - Pneumonia [Unknown]
  - Respiratory tract infection [Unknown]
  - Yellow nail syndrome [Unknown]
  - Sinusitis [Unknown]
  - Pleural effusion [Unknown]
  - Lymphoedema [Unknown]
